FAERS Safety Report 18820388 (Version 1)
Quarter: 2021Q1

REPORT INFORMATION
  Report Type: Spontaneous
  Country: US (occurrence: US)
  Receive Date: 20210201
  Receipt Date: 20210201
  Transmission Date: 20210419
  Serious: Yes (Other)
  Sender: FDA-Public Use
  Company Number: None

PATIENT
  Age: 67 Year
  Sex: Female

DRUGS (3)
  1. BACTRIM [Concomitant]
     Active Substance: SULFAMETHOXAZOLE\TRIMETHOPRIM
  2. MEROPENEM. [Concomitant]
     Active Substance: MEROPENEM
  3. CHLORHEXIDINE GLUCONATE ORAL RINSE, 0.12% [Suspect]
     Active Substance: CHLORHEXIDINE GLUCONATE
     Indication: ANTIBIOTIC PROPHYLAXIS
     Dosage: ?          OTHER ROUTE:SWISH AND SPIT?
     Dates: start: 20200928, end: 20201112

REACTIONS (18)
  - Enterobacter pneumonia [None]
  - Anuria [None]
  - Fall [None]
  - Respiratory failure [None]
  - Pneumonia [None]
  - Recalled product [None]
  - Suspected transmission of an infectious agent via product [None]
  - Rhabdomyolysis [None]
  - Cardiac arrest [None]
  - Fungal infection [None]
  - Acute kidney injury [None]
  - Bradycardia [None]
  - Enterococcal sepsis [None]
  - Spinal column injury [None]
  - Dialysis [None]
  - Hypotension [None]
  - Leukocytosis [None]
  - Burkholderia infection [None]

NARRATIVE: CASE EVENT DATE: 20201023
